FAERS Safety Report 12306788 (Version 1)
Quarter: 2016Q2

REPORT INFORMATION
  Report Type: Spontaneous
  Country: US (occurrence: US)
  Receive Date: 20160426
  Receipt Date: 20160426
  Transmission Date: 20160815
  Serious: No
  Sender: FDA-Public Use
  Company Number: US-PFIZER INC-2016229379

PATIENT
  Age: 56 Year
  Sex: Female

DRUGS (2)
  1. MICRONASE [Suspect]
     Active Substance: GLYBURIDE
     Dosage: UNK
  2. CIPROFLOXACIN. [Suspect]
     Active Substance: CIPROFLOXACIN
     Dosage: 500 MG, UNK

REACTIONS (3)
  - Pruritus [Unknown]
  - Drug hypersensitivity [Not Recovered/Not Resolved]
  - Vomiting [Unknown]

NARRATIVE: CASE EVENT DATE: 1993
